FAERS Safety Report 5231675-5 (Version None)
Quarter: 2007Q1

REPORT INFORMATION
  Report Type: 
  Country: None (occurrence: None)
  Receive Date: 20070202
  Receipt Date: 20070125
  Transmission Date: 20070707
  Serious: Yes (Hospitalization)
  Sender: FDA-Public Use
  Company Number: 2007SP001658

PATIENT
  Age: 52 Year
  Sex: Male

DRUGS (2)
  1. PEG-INTRON [Suspect]
     Indication: HEPATITIS C
     Dosage: SC
     Route: 058
     Dates: start: 20061118, end: 20070113
  2. REBETOL [Suspect]
     Indication: HEPATITIS C
     Dosage: PO
     Route: 048
     Dates: start: 20061118, end: 20070113

REACTIONS (4)
  - DELIRIUM [None]
  - MEMORY IMPAIRMENT [None]
  - PNEUMONIA [None]
  - RESPIRATORY ARREST [None]
